FAERS Safety Report 7951148-6 (Version None)
Quarter: 2011Q4

REPORT INFORMATION
  Report Type: 
  Country: None (occurrence: None)
  Receive Date: 20111123
  Receipt Date: 20111111
  Transmission Date: 20120403
  Serious: Yes (Other)
  Sender: FDA-Public Use
  Company Number: 2011SP053510

PATIENT
  Age: 35 Year
  Sex: Female

DRUGS (3)
  1. CLARITIN-D 24 HOUR [Suspect]
     Indication: URTICARIA
     Dosage: ;  ; PO
     Route: 048
  2. BENADRYL [Suspect]
  3. PREDNISONE TAB [Concomitant]

REACTIONS (3)
  - TREMOR [None]
  - HALLUCINATION [None]
  - ANXIETY [None]
